FAERS Safety Report 7403552-2 (Version None)
Quarter: 2011Q2

REPORT INFORMATION
  Report Type: 
  Country: None (occurrence: None)
  Receive Date: 20110408
  Receipt Date: 20110331
  Transmission Date: 20111010
  Serious: Yes (Hospitalization)
  Sender: FDA-Public Use
  Company Number: US-AMGEN-USASP2011017375

PATIENT
  Age: 65 Year
  Sex: Female

DRUGS (14)
  1. EPOGEN [Suspect]
     Indication: RENAL FAILURE CHRONIC
  2. THIAMINE [Concomitant]
  3. DEPAKOTE [Suspect]
  4. LACTULOSE [Concomitant]
  5. PHENERGAN HCL [Concomitant]
  6. LAMICTAL [Suspect]
  7. LACTOBACILLUS [Concomitant]
  8. ARANESP [Suspect]
     Indication: RENAL FAILURE CHRONIC
  9. SORBITOL [Concomitant]
  10. LORAZEPAM [Concomitant]
  11. SEROQUEL [Suspect]
  12. HYCODAN                            /00060002/ [Concomitant]
  13. GENTAMICIN [Concomitant]
  14. MIRALAX [Concomitant]

REACTIONS (5)
  - HAEMOGLOBIN DECREASED [None]
  - GENERAL PHYSICAL HEALTH DETERIORATION [None]
  - DYSPHAGIA [None]
  - THROMBOCYTOPENIA [None]
  - DYSSTASIA [None]
